FAERS Safety Report 15584919 (Version 2)
Quarter: 2018Q4

REPORT INFORMATION
  Report Type: Spontaneous
  Country: CH (occurrence: CH)
  Receive Date: 20181102
  Receipt Date: 20181106
  Transmission Date: 20190205
  Serious: Yes (Other)
  Sender: FDA-Public Use
  Company Number: CH-BAYER-RCH-306364

PATIENT
  Age: 72 Year
  Sex: Female
  Weight: 71 kg

DRUGS (6)
  1. ASPIRIN CARDIO 100 MG [Suspect]
     Active Substance: ASPIRIN
     Indication: ACUTE MYOCARDIAL INFARCTION
     Dosage: 100 MG (DAILY DOSE), , ORAL
     Route: 048
     Dates: start: 20020104
  2. REOPRO [Interacting]
     Active Substance: ABCIXIMAB
     Indication: ACUTE MYOCARDIAL INFARCTION
     Route: 042
     Dates: start: 20020104, end: 20020105
  3. ZOCOR [Concomitant]
     Active Substance: SIMVASTATIN
     Indication: HYPERLIPIDAEMIA
     Dosage: FOR MONTHS.
     Route: 048
     Dates: end: 20020115
  4. REOPRO [Interacting]
     Active Substance: ABCIXIMAB
     Indication: ACUTE MYOCARDIAL INFARCTION
     Dosage: IV BOLUS
     Route: 042
     Dates: start: 20020104, end: 20020104
  5. LIQUEMIN [Suspect]
     Active Substance: HEPARIN SODIUM
     Indication: ACUTE MYOCARDIAL INFARCTION
     Route: 042
     Dates: start: 20010104
  6. PLAVIX [Interacting]
     Active Substance: CLOPIDOGREL BISULFATE
     Indication: ACUTE MYOCARDIAL INFARCTION
     Dosage: 75 MG (DAILY DOSE), , ORAL
     Route: 048
     Dates: start: 20020104

REACTIONS (2)
  - Haemorrhagic disorder [Recovering/Resolving]
  - Drug interaction [None]

NARRATIVE: CASE EVENT DATE: 20020105
